FAERS Safety Report 16664949 (Version 1)
Quarter: 2019Q3

REPORT INFORMATION
  Report Type: Spontaneous
  Country: DK (occurrence: DK)
  Receive Date: 20190803
  Receipt Date: 20190803
  Transmission Date: 20191004
  Serious: Yes (Life-Threatening)
  Sender: FDA-Public Use
  Company Number: DK-009507513-1907DNK016245

PATIENT
  Age: 70 Year
  Sex: Female

DRUGS (5)
  1. JARDIANCE [Suspect]
     Active Substance: EMPAGLIFLOZIN
     Indication: DIABETES MELLITUS
     Dosage: 10 MILLIGRAM, QD
     Route: 048
     Dates: start: 20190529, end: 20190602
  2. KEYTRUDA [Suspect]
     Active Substance: PEMBROLIZUMAB
     Indication: SMALL CELL LUNG CANCER
     Dosage: STRENGTH:150 MG IV (INTRAVENOUS) 5 SERIES IN TOTAL, 175 MG UNTIL 08-MAY-2019, FORMULATION:POWDER FOR
     Route: 042
     Dates: start: 2018, end: 20190620
  3. MORPHINE [Concomitant]
     Active Substance: MORPHINE
     Indication: PAIN
     Dosage: STRENGTH:10MG DOSE:1 TABLET AS NEEDED, MAXIMUM 4 TIMES DAILY
     Route: 048
     Dates: start: 2018
  4. OZEMPIC [Concomitant]
     Active Substance: SEMAGLUTIDE
     Indication: DIABETES MELLITUS
     Dosage: STRENGTH: 0.5 MG AND 0.25 MILLIGRAM; DOSE: ONCE WEEKLY
     Dates: start: 201905, end: 20190602
  5. METFORMIN [Concomitant]
     Active Substance: METFORMIN HYDROCHLORIDE
     Indication: DIABETES MELLITUS
     Dosage: STRENGTH:VARYING; DOSE:VARYING
     Route: 048
     Dates: start: 201905

REACTIONS (4)
  - Diabetes mellitus [Unknown]
  - Blood glucose increased [Recovered/Resolved]
  - Ketoacidosis [Recovered/Resolved]
  - Glycosylated haemoglobin increased [Recovered/Resolved]

NARRATIVE: CASE EVENT DATE: 20190602
